FAERS Safety Report 8586050-2 (Version None)
Quarter: 2012Q3

REPORT INFORMATION
  Report Type: 
  Country: None (occurrence: None)
  Receive Date: 20120810
  Receipt Date: 20120727
  Transmission Date: 20120928
  Serious: Yes (Death, Other)
  Sender: FDA-Public Use
  Company Number: JP-ROCHE-1058658

PATIENT
  Sex: Male
  Weight: 26 kg

DRUGS (13)
  1. PREDNISOLONE [Concomitant]
     Dosage: 2-3MG
     Route: 048
     Dates: start: 20080728, end: 20100228
  2. PREDNISOLONE [Concomitant]
     Indication: JUVENILE ARTHRITIS
     Dosage: 2-3MG
     Route: 048
     Dates: start: 20080728, end: 20100228
  3. ACTEMRA [Suspect]
     Dosage: DOSAGE IS UNCERTAIN.
     Route: 041
     Dates: start: 20100401, end: 20100401
  4. ACTEMRA [Suspect]
     Dosage: DOSAGE IS UNCERTAIN.
     Route: 041
     Dates: start: 20100419, end: 20120224
  5. PREDNISOLONE [Concomitant]
     Route: 048
     Dates: start: 20110401, end: 20110421
  6. PREDNISOLONE [Concomitant]
     Route: 048
     Dates: start: 20110506, end: 20110601
  7. PREDNISOLONE [Concomitant]
     Route: 048
     Dates: start: 20110601, end: 20110701
  8. PREDNISOLONE [Concomitant]
     Route: 048
     Dates: start: 20110422, end: 20110505
  9. PREDNISOLONE [Concomitant]
     Route: 048
     Dates: start: 20110901, end: 20111101
  10. PREDNISOLONE [Concomitant]
     Route: 048
     Dates: start: 20110801, end: 20110901
  11. ACTEMRA [Suspect]
     Indication: JUVENILE ARTHRITIS
     Dosage: DOSAGE IS UNCERTAIN.
     Route: 041
     Dates: start: 20100323, end: 20100323
  12. PREDNISOLONE [Concomitant]
     Route: 048
     Dates: start: 20110701, end: 20110801
  13. PREDNISOLONE [Concomitant]
     Route: 048
     Dates: start: 20100312

REACTIONS (6)
  - HISTIOCYTOSIS HAEMATOPHAGIC [None]
  - MUMPS [None]
  - PULMONARY HAEMORRHAGE [None]
  - DISSEMINATED INTRAVASCULAR COAGULATION [None]
  - HEPATIC FUNCTION ABNORMAL [None]
  - LIVER DISORDER [None]
